FAERS Safety Report 16374672 (Version 2)
Quarter: 2019Q3

REPORT INFORMATION
  Report Type: Report from Study
  Country: IT (occurrence: IT)
  Receive Date: 20190530
  Receipt Date: 20190710
  Transmission Date: 20191004
  Serious: Yes (Other)
  Sender: FDA-Public Use
  Company Number: IT-INCYTE CORPORATION-2019IN004157

PATIENT

DRUGS (2)
  1. JAKAVI [Suspect]
     Active Substance: RUXOLITINIB
     Indication: MYELOFIBROSIS
     Dosage: 20 MG, QD (DIE)
     Route: 048
     Dates: start: 20180420
  2. JAKAVI [Suspect]
     Active Substance: RUXOLITINIB
     Dosage: 20 MG, QD (DIE)
     Route: 048
     Dates: start: 20181003, end: 20190227

REACTIONS (6)
  - Anaemia [Unknown]
  - Hepatomegaly [Unknown]
  - Acute leukaemia [Not Recovered/Not Resolved]
  - Hepatitis A virus test positive [Unknown]
  - Thrombocytopenia [Unknown]
  - Splenomegaly [Unknown]

NARRATIVE: CASE EVENT DATE: 20190213
